FAERS Safety Report 25954236 (Version 1)
Quarter: 2025Q4

REPORT INFORMATION
  Report Type: Spontaneous
  Country: CN (occurrence: CN)
  Receive Date: 20251023
  Receipt Date: 20251023
  Transmission Date: 20260118
  Serious: Yes (Other)
  Sender: NOVO NORDISK
  Company Number: CN-NOVOPROD-1540912

PATIENT
  Age: 35 Year
  Sex: Female

DRUGS (4)
  1. WEGOVY [Suspect]
     Active Substance: SEMAGLUTIDE
     Indication: Weight control
     Dosage: 0.25 MG (TURNING THE DOSE BUTTON 17 TIMES, FIRST DOSE)
     Dates: start: 20250915
  2. WEGOVY [Suspect]
     Active Substance: SEMAGLUTIDE
     Dosage: 0.5 MG (TURNING THE DOSE BUTTON 30 TIMES, FOURTH DOSE)
     Dates: start: 20251006
  3. WEGOVY [Suspect]
     Active Substance: SEMAGLUTIDE
     Dosage: 0.5 MG (TURNING THE DOSE BUTTON 30 TIMES, THIRD DOSE)
     Dates: start: 2025
  4. WEGOVY [Suspect]
     Active Substance: SEMAGLUTIDE
     Dosage: 0.25 MG (TURNING THE DOSE BUTTON 17 TIMES, SECOND DOSE)
     Dates: start: 202509

REACTIONS (5)
  - Pain [Recovered/Resolved]
  - Cholecystitis [Recovered/Resolved]
  - Biliary colic [Unknown]
  - Off label use [Unknown]
  - Wrong technique in product usage process [Unknown]

NARRATIVE: CASE EVENT DATE: 20250915
